FAERS Safety Report 7960449-7 (Version None)
Quarter: 2011Q4

REPORT INFORMATION
  Report Type: 
  Country: None (occurrence: None)
  Receive Date: 20111206
  Receipt Date: 20111201
  Transmission Date: 20120403
  Serious: Yes (Other)
  Sender: FDA-Public Use
  Company Number: US-ROXANE LABORATORIES, INC.-2011-RO-01722RO

PATIENT
  Age: 71 Year
  Sex: Female

DRUGS (15)
  1. WARFARIN SODIUM [Suspect]
  2. TEMOZOLOMIDE [Concomitant]
     Indication: GLIOBLASTOMA MULTIFORME
  3. DEXAMETHASONE [Suspect]
     Dosage: 4 MG
     Route: 042
  4. WARFARIN SODIUM [Suspect]
     Dosage: 5 MG
     Route: 048
  5. PRAVASTATIN [Concomitant]
     Dosage: 20 MG
  6. DEXAMETHASONE [Suspect]
     Indication: BRAIN OEDEMA
     Dosage: 2 MG
  7. LEVETIRACETAM [Suspect]
     Dosage: 5 G
     Route: 042
  8. MIDAZOLAM [Suspect]
     Indication: COMPLEX PARTIAL SEIZURES
     Dosage: 3 MG
     Route: 042
  9. WARFARIN SODIUM [Suspect]
     Indication: DEEP VEIN THROMBOSIS
     Dosage: 2.5 MG
     Route: 048
  10. VALPROIC ACID [Suspect]
     Dosage: 1000 MG
     Route: 042
  11. VALPROIC ACID [Suspect]
     Dosage: 1000 MG
  12. LEVETIRACETAM [Suspect]
     Indication: COMPLEX PARTIAL SEIZURES
     Route: 042
  13. LEVETIRACETAM [Suspect]
     Dosage: 1 G
     Route: 042
  14. VALPROIC ACID [Suspect]
     Indication: EPILEPSY
     Dosage: 1100 MG
     Route: 042
  15. FISH OIL [Concomitant]

REACTIONS (2)
  - INTERNATIONAL NORMALISED RATIO INCREASED [None]
  - EPILEPSY [None]
